FAERS Safety Report 7017678-9 (Version None)
Quarter: 2010Q3

REPORT INFORMATION
  Report Type: 
  Country: None (occurrence: None)
  Receive Date: 20100927
  Receipt Date: 20100927
  Transmission Date: 20110219
  Serious: No
  Sender: FDA-Public Use
  Company Number: None

PATIENT
  Sex: Female

DRUGS (1)
  1. PROCRIT [Suspect]
     Indication: ANAEMIA
     Dosage: 40,000U WEEKLY S.Q.
     Route: 058
     Dates: start: 20100915

REACTIONS (2)
  - CHILLS [None]
  - INFLUENZA LIKE ILLNESS [None]
